FAERS Safety Report 8063161-1 (Version None)
Quarter: 2012Q1

REPORT INFORMATION
  Report Type: 
  Country: None (occurrence: None)
  Receive Date: 20120123
  Receipt Date: 20120111
  Transmission Date: 20120608
  Serious: Yes (Hospitalization)
  Sender: FDA-Public Use
  Company Number: US-BAYER-2011-006992

PATIENT
  Age: 32 Year
  Sex: Female
  Weight: 81.633 kg

DRUGS (7)
  1. REQUIP [Concomitant]
  2. LORTAB [Concomitant]
  3. ORTHO TRI-CYCLEN [Concomitant]
     Dosage: UNK
     Dates: start: 20100316
  4. PHENERGAN [Concomitant]
  5. PROZAC [Concomitant]
  6. YAZ [Suspect]
     Dosage: UNK
     Route: 048
     Dates: start: 20080301, end: 20090201
  7. ORTHO CYCLEN-28 [Concomitant]
     Dosage: UNK

REACTIONS (10)
  - NAUSEA [None]
  - FEAR [None]
  - GALLBLADDER DISORDER [None]
  - CHOLECYSTITIS ACUTE [None]
  - ANXIETY [None]
  - PSYCHOLOGICAL TRAUMA [None]
  - PAIN [None]
  - EMOTIONAL DISTRESS [None]
  - VOMITING [None]
  - ABDOMINAL PAIN UPPER [None]
